FAERS Safety Report 22806856 (Version 2)
Quarter: 2023Q4

REPORT INFORMATION
  Report Type: Spontaneous
  Country: NL (occurrence: NL)
  Receive Date: 20230810
  Receipt Date: 20231005
  Transmission Date: 20240110
  Serious: Yes (Other)
  Sender: FDA-Public Use
  Company Number: None

PATIENT
  Age: 24 Year
  Sex: Female
  Weight: 75 kg

DRUGS (7)
  1. TRIAMCINOLONE ACETONIDE [Suspect]
     Active Substance: TRIAMCINOLONE ACETONIDE
     Indication: Eczema
     Dosage: 2 X PER DAG SMEREN?(APPLY 2 X PER DAY)
     Route: 065
     Dates: start: 20081210
  2. TRIAMCINOLONE ACETONIDE [Suspect]
     Active Substance: TRIAMCINOLONE ACETONIDE
     Indication: Eczema
     Dosage: 2 X PER DAY TO APPLY
     Route: 065
     Dates: start: 20081210
  3. CLOBETASOL [Suspect]
     Active Substance: CLOBETASOL
     Indication: Eczema
     Dosage: 2 X PER DAY TO APPLY
     Route: 065
     Dates: start: 20081210
  4. HYDROCORTISONE\MICONAZOLE [Suspect]
     Active Substance: HYDROCORTISONE\MICONAZOLE
     Indication: Eczema
     Dosage: 2 X PER DAY TO APPLY
     Route: 065
     Dates: start: 20081210
  5. PIMECROLIMUS [Suspect]
     Active Substance: PIMECROLIMUS
     Indication: Eczema
     Dosage: 1 DF, QOD (2 X PER DAY, EVERY OTHER DAY (ALTERNATING WITH STEROIDS)
     Route: 065
  6. PIMECROLIMUS [Suspect]
     Active Substance: PIMECROLIMUS
     Dosage: 1 DF, QOD (2 X PER DAY, EVERY OTHER DAY (ALTERNATING WITH STEROIDS)
     Route: 065
     Dates: start: 20201010
  7. HYDROCORTISONE ACETATE [Suspect]
     Active Substance: HYDROCORTISONE ACETATE
     Indication: Eczema
     Dosage: 2 X PER DAY TO APPLY
     Route: 065
     Dates: start: 20081210

REACTIONS (2)
  - Drug dependence [Unknown]
  - Eczema [Recovered/Resolved]

NARRATIVE: CASE EVENT DATE: 20190101
